FAERS Safety Report 9513112 (Version 5)
Quarter: 2013Q4

REPORT INFORMATION
  Report Type: Report from Study
  Country: US (occurrence: US)
  Receive Date: 20130910
  Receipt Date: 20131107
  Transmission Date: 20140711
  Serious: Yes (Hospitalization, Other)
  Sender: FDA-Public Use
  Company Number: US-ACTELION-A-NJ2013-88129

PATIENT
  Age: 72 Year
  Sex: Female

DRUGS (17)
  1. TRACLEER [Suspect]
     Indication: PULMONARY ARTERIAL HYPERTENSION
     Dosage: 125 MG, BID
     Route: 048
     Dates: start: 201201, end: 20130909
  2. TRACLEER [Suspect]
     Dosage: UNK
     Route: 048
     Dates: start: 20131005
  3. TYVASO [Concomitant]
  4. BUMEX [Concomitant]
     Dosage: 1 MG, UNK
  5. DIGOXIN [Concomitant]
     Dosage: 125 MG, UNK
  6. DILTIAZEM [Concomitant]
     Dosage: 180 MG, UNK
  7. GABAPENTIN [Concomitant]
     Dosage: 300 MG, UNK
  8. LISINOPRIL [Concomitant]
     Dosage: 5 MG, BID
  9. MAGNESIUM OXIDE [Concomitant]
     Dosage: 400 MG, BID
  10. METFORMIN [Concomitant]
     Dosage: 500 MG, BID
  11. METOPROLOL [Concomitant]
     Dosage: 100 MG, BID
  12. MULTIVITAMIN [Concomitant]
     Dosage: 1 UNK, UNK
  13. POTASSIUM [Concomitant]
     Dosage: 20 MEQ, BID
  14. SIMVASTATIN [Concomitant]
     Dosage: 20 MG, UNK
  15. VITAMIN D [Concomitant]
     Dosage: 50000 IU, UNK
  16. VITAMIN E [Concomitant]
     Dosage: 400 IU, UNK
  17. ASPIRIN [Concomitant]
     Dosage: 325 MG, UNK

REACTIONS (3)
  - Hepatic enzyme increased [Recovered/Resolved]
  - Pneumonia [Recovered/Resolved]
  - Asthenia [Unknown]
